FAERS Safety Report 9767587 (Version 2)
Quarter: 2013Q4

REPORT INFORMATION
  Report Type: Spontaneous
  Country: US (occurrence: US)
  Receive Date: 20131217
  Receipt Date: 20131217
  Transmission Date: 20140711
  Serious: No
  Sender: FDA-Public Use
  Company Number: US-GILEAD-2010-0027798

PATIENT
  Sex: Male
  Weight: 58.97 kg

DRUGS (7)
  1. ATRIPLA [Suspect]
     Indication: HIV INFECTION
     Route: 048
     Dates: start: 200904, end: 200906
  2. ATRIPLA [Suspect]
     Route: 048
     Dates: start: 200906
  3. PREDNISONE [Concomitant]
  4. MARINOL [Concomitant]
  5. TESTOSTERONE [Concomitant]
  6. OXANDARONE [Concomitant]
  7. XANAX [Concomitant]

REACTIONS (1)
  - Polycythaemia [Recovering/Resolving]
